FAERS Safety Report 17206705 (Version 1)
Quarter: 2019Q4

REPORT INFORMATION
  Report Type: Spontaneous
  Country: FR (occurrence: FR)
  Receive Date: 20191227
  Receipt Date: 20191227
  Transmission Date: 20200122
  Serious: Yes (Life-Threatening)
  Sender: FDA-Public Use
  Company Number: FR-TEVA-2019-FR-1157895

PATIENT
  Age: 48 Year
  Sex: Female
  Weight: 66.2 kg

DRUGS (16)
  1. METHYLPREDNISOLONE MYLAN [Suspect]
     Active Substance: METHYLPREDNISOLONE
     Indication: B-CELL LYMPHOMA
     Dosage: 500 MG
     Route: 041
     Dates: start: 20120912, end: 201302
  2. ARIXTRA [Concomitant]
     Active Substance: FONDAPARINUX SODIUM
  3. DUPHALAC [Concomitant]
     Active Substance: LACTULOSE
  4. CYCLOPHOSPHAMIDE. [Suspect]
     Active Substance: CYCLOPHOSPHAMIDE
     Indication: B-CELL LYMPHOMA
     Dosage: 1320 MG
     Route: 041
     Dates: start: 20120912, end: 201302
  5. CORTANCYL 20 MG, COMPRIME SECABLE [Concomitant]
  6. TEGRETOL [Concomitant]
     Active Substance: CARBAMAZEPINE
  7. ACIDE FOLIQUE [Concomitant]
     Active Substance: FOLIC ACID
  8. TIAPRIDAL 100 MG, COMPRIME SECABLE [Concomitant]
     Active Substance: TIAPRIDE HYDROCHLORIDE
  9. ETOPOSIDE. [Suspect]
     Active Substance: ETOPOSIDE
     Indication: B-CELL LYMPHOMA
     Dosage: 100 MG
     Route: 041
     Dates: start: 20120912, end: 201302
  10. RITUXIMAB ((MAMMIFERE/HAMSTER/CELLULES CHO)) [Suspect]
     Active Substance: RITUXIMAB
     Indication: B-CELL LYMPHOMA
     Dosage: 700 MG
     Route: 041
     Dates: start: 20120912, end: 201302
  11. SPASFON [Concomitant]
  12. INEXIUM 40 MG, COMPRIME GASTRO-RESISTANT [Concomitant]
     Active Substance: ESOMEPRAZOLE MAGNESIUM
  13. DOXORUBICINE [Suspect]
     Active Substance: DOXORUBICIN
     Indication: B-CELL LYMPHOMA
     Dosage: 88 MG
     Route: 041
     Dates: start: 20120912, end: 201302
  14. METHOTREXATE. [Suspect]
     Active Substance: METHOTREXATE
     Indication: B-CELL LYMPHOMA
     Dosage: 5300 MG
     Route: 041
     Dates: start: 20120912, end: 201302
  15. ACUPAN [Concomitant]
     Active Substance: NEFOPAM HYDROCHLORIDE
  16. EPITOMAX 100 MG, COMPRIM? PELLICUL? [Concomitant]

REACTIONS (1)
  - Sepsis [Recovered/Resolved]

NARRATIVE: CASE EVENT DATE: 201210
